FAERS Safety Report 5859758-7 (Version None)
Quarter: 2008Q3

REPORT INFORMATION
  Report Type: 
  Country: None (occurrence: None)
  Receive Date: 20080818
  Receipt Date: 20080522
  Transmission Date: 20090109
  Serious: No
  Sender: FDA-Public Use
  Company Number: WAES 0805USA04893

PATIENT
  Age: 65 Year
  Sex: Female

DRUGS (3)
  1. JANUVIA [Suspect]
     Indication: TYPE 2 DIABETES MELLITUS
     Dosage: 100 MG/DAILY/PO
     Route: 048
     Dates: start: 20080401, end: 20080522
  2. ACIPHEX [Concomitant]
  3. CELEBREX [Concomitant]

REACTIONS (4)
  - COUGH [None]
  - DRY THROAT [None]
  - RHINORRHOEA [None]
  - THROAT IRRITATION [None]
